FAERS Safety Report 23888006 (Version 1)
Quarter: 2024Q2

REPORT INFORMATION
  Report Type: Spontaneous
  Country: US (occurrence: US)
  Receive Date: 20240523
  Receipt Date: 20240523
  Transmission Date: 20240716
  Serious: No
  Sender: FDA-Public Use
  Company Number: US-BIOGEN-2024BI01265730

PATIENT
  Sex: Male

DRUGS (4)
  1. VUMERITY [Suspect]
     Active Substance: DIROXIMEL FUMARATE
     Indication: Multiple sclerosis
     Dosage: FIRST DOSE (UNKNOWN)
     Route: 050
  2. VUMERITY [Suspect]
     Active Substance: DIROXIMEL FUMARATE
     Dosage: FIRST DOSE OF 2 CAPSULES (2 231 MG)-462 MG
     Route: 050
  3. LOSARTAN [Concomitant]
     Active Substance: LOSARTAN
     Route: 050
  4. NIFEDIPINE [Concomitant]
     Active Substance: NIFEDIPINE
     Route: 050

REACTIONS (4)
  - Facial pain [Not Recovered/Not Resolved]
  - Paraesthesia [Unknown]
  - Anxiety [Unknown]
  - Flushing [Recovered/Resolved]
